FAERS Safety Report 8808800 (Version 1)
Quarter: 2012Q4

REPORT INFORMATION
  Report Type: 
  Country: US (occurrence: US)
  Receive Date: 20120926
  Receipt Date: 20120926
  Transmission Date: 20130627
  Serious: No
  Sender: FDA-Public Use
  Company Number: US-BAYER-2012-098551

PATIENT
  Age: 90 Year
  Sex: Female
  Weight: 66.67 kg

DRUGS (2)
  1. ALEVE CAPLET/TABLET,MIDOL EXTENDED RELIEF CAPLET [Suspect]
     Indication: BACK PAIN
     Dosage: 2 DF, ONCE
     Route: 048
     Dates: start: 20120917, end: 20120917
  2. METFORMIN [Concomitant]

REACTIONS (1)
  - Pruritus generalised [Not Recovered/Not Resolved]
